FAERS Safety Report 14461818 (Version 1)
Quarter: 2018Q1

REPORT INFORMATION
  Report Type: Spontaneous
  Country: FR (occurrence: FR)
  Receive Date: 20180130
  Receipt Date: 20180130
  Transmission Date: 20180509
  Serious: Yes (Life-Threatening, Hospitalization)
  Sender: FDA-Public Use
  Company Number: FR-TEVA-2018-FR-850342

PATIENT
  Age: 74 Year
  Sex: Male
  Weight: 60 kg

DRUGS (16)
  1. CARBOPLATIN. [Suspect]
     Active Substance: CARBOPLATIN
     Dosage: 615 MG, CYCLICAL
     Route: 065
     Dates: start: 20171004, end: 20171004
  2. ALIMTA [Suspect]
     Active Substance: PEMETREXED DISODIUM
     Dosage: 850 MG, CYCLICAL
     Route: 065
     Dates: start: 20171004, end: 20171004
  3. VITABACT [Concomitant]
     Active Substance: PICLOXYDINE DIHYDROCHLORIDE
     Indication: PRODUCT USED FOR UNKNOWN INDICATION
     Dosage: UNK, UNKNOWN
     Route: 065
  4. CLINUTREN HP ENERGY [Concomitant]
     Indication: PRODUCT USED FOR UNKNOWN INDICATION
     Dosage: UNK, UNKNOWN
     Route: 065
  5. ALIMTA [Suspect]
     Active Substance: PEMETREXED DISODIUM
     Dosage: 675 MG, CYCLICAL
     Route: 065
     Dates: start: 20171025, end: 20171025
  6. EPREX [Concomitant]
     Active Substance: ERYTHROPOIETIN
     Indication: PRODUCT USED FOR UNKNOWN INDICATION
     Dosage: 1 DF, WEEKLY (1/W)
     Route: 065
  7. SPECIAFOLDINE [Concomitant]
     Active Substance: FOLIC ACID
     Indication: PRODUCT USED FOR UNKNOWN INDICATION
     Dosage: 1 DF, DAILY
     Route: 065
  8. CARBOPLATIN. [Suspect]
     Active Substance: CARBOPLATIN
     Dosage: 400 MG, CYCLICAL
     Route: 065
     Dates: start: 20171025, end: 20171025
  9. INNOHEP [Concomitant]
     Active Substance: TINZAPARIN SODIUM
     Indication: PRODUCT USED FOR UNKNOWN INDICATION
     Dosage: 1 DF, DAILY
     Route: 065
     Dates: end: 2017
  10. CARBOPLATIN. [Suspect]
     Active Substance: CARBOPLATIN
     Indication: LUNG ADENOCARCINOMA
     Dosage: 315 MG, CYCLICAL
     Route: 065
     Dates: start: 20171115, end: 20171115
  11. ALIMTA [Suspect]
     Active Substance: PEMETREXED DISODIUM
     Indication: LUNG ADENOCARCINOMA
     Dosage: 662 MG, CYCLICAL
     Route: 065
     Dates: start: 20171115, end: 20171115
  12. ALIMTA [Suspect]
     Active Substance: PEMETREXED DISODIUM
     Dosage: 850 MG, CYCLICAL
     Route: 065
     Dates: start: 20171004, end: 20171004
  13. SULFARLEM [Concomitant]
     Active Substance: ANETHOLTRITHION
     Indication: PRODUCT USED FOR UNKNOWN INDICATION
     Dosage: UNK, UNKNOWN
     Route: 065
  14. LYRICA [Concomitant]
     Active Substance: PREGABALIN
     Indication: PRODUCT USED FOR UNKNOWN INDICATION
     Dosage: UNK, QOD
     Route: 065
  15. EUPANTOL [Concomitant]
     Active Substance: PANTOPRAZOLE SODIUM
     Indication: PRODUCT USED FOR UNKNOWN INDICATION
     Dosage: 1 DF, EACH EVENING
     Route: 048
  16. LACRIFLUID [Concomitant]
     Active Substance: CARBOMER
     Indication: PRODUCT USED FOR UNKNOWN INDICATION
     Dosage: UNK, UNKNOWN
     Route: 065

REACTIONS (8)
  - Aphthous ulcer [Unknown]
  - General physical health deterioration [Not Recovered/Not Resolved]
  - Malaise [Not Recovered/Not Resolved]
  - Pancytopenia [Not Recovered/Not Resolved]
  - Decreased appetite [Not Recovered/Not Resolved]
  - Septic shock [Not Recovered/Not Resolved]
  - Dehydration [Not Recovered/Not Resolved]
  - Off label use [Unknown]

NARRATIVE: CASE EVENT DATE: 20171004
